FAERS Safety Report 9254774 (Version 2)
Quarter: 2013Q2

REPORT INFORMATION
  Report Type: Spontaneous
  Country: US (occurrence: US)
  Receive Date: 20130425
  Receipt Date: 20130425
  Transmission Date: 20140414
  Serious: Yes (Other)
  Sender: FDA-Public Use
  Company Number: US-PERRIGO-13US004192

PATIENT
  Age: 1 Year
  Sex: Female
  Weight: 9.07 kg

DRUGS (2)
  1. ACETAMINOPHEN CHILD GRAPE 32 MG/ML 130 [Suspect]
     Indication: ACCIDENTAL EXPOSURE TO PRODUCT
     Dosage: 960 MG, SINGLE
     Route: 048
     Dates: start: 20130416, end: 20130416
  2. ACETAMINOPHEN CHILD GRAPE 32 MG/ML 130 [Suspect]
     Indication: PYREXIA
     Dosage: 120 UNK, UNK
     Route: 048
     Dates: start: 20130416, end: 20130416

REACTIONS (5)
  - Accidental overdose [Recovered/Resolved]
  - Psychomotor hyperactivity [Recovered/Resolved]
  - Drug administered to patient of inappropriate age [Recovered/Resolved]
  - Accidental exposure to product by child [None]
  - Toxicity to various agents [None]
